FAERS Safety Report 7664983-9 (Version None)
Quarter: 2011Q3

REPORT INFORMATION
  Report Type: 
  Country: None (occurrence: None)
  Receive Date: 20110806
  Receipt Date: 20110209
  Transmission Date: 20111222
  Serious: No
  Sender: FDA-Public Use
  Company Number: US-ABBOTT-11P-163-0704551-00

PATIENT
  Sex: Male
  Weight: 96.248 kg

DRUGS (4)
  1. PLAVIX [Concomitant]
     Indication: PRODUCT USED FOR UNKNOWN INDICATION
  2. NIASPAN [Suspect]
     Indication: BLOOD CHOLESTEROL INCREASED
     Dosage: TAKES AT NIGHT
     Route: 048
  3. NIASPAN [Suspect]
     Route: 048
     Dates: start: 20110127
  4. NIASPAN [Suspect]
     Route: 048
     Dates: end: 20100201

REACTIONS (3)
  - FLUSHING [None]
  - MIDDLE INSOMNIA [None]
  - PRURITUS [None]
